FAERS Safety Report 5471822-3 (Version None)
Quarter: 2007Q3

REPORT INFORMATION
  Report Type: 
  Country: None (occurrence: None)
  Receive Date: 20070928
  Receipt Date: 20070628
  Transmission Date: 20080115
  Serious: No
  Sender: FDA-Public Use
  Company Number: US-BRISTOL-MYERS SQUIBB COMPANY-13813258

PATIENT
  Age: 62 Year
  Sex: Female

DRUGS (12)
  1. DEFINITY [Suspect]
     Indication: ECHOCARDIOGRAM
     Dosage: DILUTED IN 8.5 ML OPF PRESERVATIVE FREE SALINE
     Route: 042
  2. GLYBURIDE [Concomitant]
  3. ZOCOR [Concomitant]
  4. ATENOLOL [Concomitant]
  5. PROTONIX [Concomitant]
  6. LANTUS [Concomitant]
  7. ASPIRIN [Concomitant]
  8. GLUCOPHAGE [Concomitant]
  9. PLAVIX [Concomitant]
  10. POTASSIUM CHLORIDE [Concomitant]
  11. FUROSEMIDE [Concomitant]
  12. LISINOPRIL [Concomitant]

REACTIONS (3)
  - ARTHRALGIA [None]
  - BACK PAIN [None]
  - PAIN IN EXTREMITY [None]
